FAERS Safety Report 8555763-0 (Version None)
Quarter: 2012Q3

REPORT INFORMATION
  Report Type: 
  Country: None (occurrence: None)
  Receive Date: 20120801
  Receipt Date: 20120720
  Transmission Date: 20120928
  Serious: Yes (Hospitalization)
  Sender: FDA-Public Use
  Company Number: FR-BIOGENIDEC-2012BI023593

PATIENT
  Age: 35 Year
  Sex: Male

DRUGS (5)
  1. TYSABRI [Suspect]
     Indication: MULTIPLE SCLEROSIS
     Route: 042
     Dates: start: 20080201
  2. LYRICA [Concomitant]
     Route: 048
     Dates: start: 20110401
  3. MINIRIN [Concomitant]
     Route: 048
     Dates: start: 20110401
  4. VESICARE [Concomitant]
     Route: 048
  5. TAMSULOSIN HCL [Concomitant]
     Route: 048
     Dates: start: 20090101

REACTIONS (1)
  - PANCREATITIS ACUTE [None]
